FAERS Safety Report 4615243-1 (Version None)
Quarter: 2005Q1

REPORT INFORMATION
  Report Type: 
  Country: None (occurrence: None)
  Receive Date: 20050317
  Receipt Date: 20050110
  Transmission Date: 20050727
  Serious: Yes (Life-Threatening)
  Sender: FDA-Public Use
  Company Number: SGB1-2004-00394

PATIENT
  Age: 43 Year
  Sex: Male

DRUGS (3)
  1. AGRYLIN [Suspect]
     Indication: ESSENTIAL THROMBOCYTHAEMIA
     Dosage: 0.5 MG, 1X/DAY:  QD, ORAL
     Route: 048
     Dates: start: 19990707, end: 19991029
  2. HYDROXYUREA [Concomitant]
  3. MYLERAN [Concomitant]

REACTIONS (3)
  - ACUTE MYELOID LEUKAEMIA [None]
  - DISEASE PROGRESSION [None]
  - ESSENTIAL THROMBOCYTHAEMIA [None]
